FAERS Safety Report 25090180 (Version 2)
Quarter: 2025Q2

REPORT INFORMATION
  Report Type: Spontaneous
  Country: CN (occurrence: CN)
  Receive Date: 20250318
  Receipt Date: 20250428
  Transmission Date: 20250717
  Serious: Yes (Other)
  Sender: NOVARTIS
  Company Number: CN-002147023-NVSC2025CN043217

PATIENT
  Sex: Female

DRUGS (5)
  1. LETROZOLE [Suspect]
     Active Substance: LETROZOLE
     Indication: Ovulation induction
     Dosage: 2.5 MG, QD (ON THE 1ST TO 3RD DAYS OF MENSTRUATION ADMINISTERED FOR 5 CONSECUTIVE DAYS)
     Route: 048
  2. CHORIOGONADOTROPIN ALFA [Suspect]
     Active Substance: CHORIOGONADOTROPIN ALFA
     Indication: Ovulation induction
     Route: 065
  3. HUMAN CHORIONIC GONADOTROPIN [Suspect]
     Active Substance: GONADOTROPHIN, CHORIONIC
     Indication: Ovulation induction
     Route: 030
  4. DYDROGESTERONE [Suspect]
     Active Substance: DYDROGESTERONE
     Indication: Ovulation induction
     Dosage: 10 MG, TID
     Route: 048
  5. PROGESTERONE [Suspect]
     Active Substance: PROGESTERONE
     Indication: Ovulation induction
     Dosage: 200 MG, BID
     Route: 067

REACTIONS (3)
  - Ectopic pregnancy [Unknown]
  - Maternal exposure before pregnancy [Unknown]
  - Off label use [Unknown]
